FAERS Safety Report 23892325 (Version 1)
Quarter: 2024Q2

REPORT INFORMATION
  Report Type: Spontaneous
  Country: CN (occurrence: CN)
  Receive Date: 20240524
  Receipt Date: 20240524
  Transmission Date: 20240716
  Serious: Yes (Other)
  Sender: FDA-Public Use
  Company Number: CN-SA-SAC20240520001425

PATIENT
  Age: 81 Year
  Sex: Female
  Weight: 40 kg

DRUGS (6)
  1. FOLIC ACID [Suspect]
     Active Substance: FOLIC ACID
     Indication: Nephrogenic anaemia
     Dosage: 10 MG, QW
     Route: 048
     Dates: start: 20240308, end: 20240504
  2. ZANTAC 75 [Suspect]
     Active Substance: RANITIDINE HYDROCHLORIDE
     Indication: Chronic gastritis
     Dosage: 0.15 G, QD
     Route: 048
     Dates: start: 20240430, end: 20240504
  3. CALCIUM CARBONATE\CHOLECALCIFEROL [Suspect]
     Active Substance: CALCIUM CARBONATE\CHOLECALCIFEROL
     Indication: Osteoporosis
     Dosage: 1 DF, QD
     Route: 048
     Dates: start: 20240308, end: 20240504
  4. HYDROXYCHLOROQUINE SULFATE [Suspect]
     Active Substance: HYDROXYCHLOROQUINE SULFATE
     Indication: Chronic kidney disease
     Dosage: 0.2 G, BID
     Route: 048
     Dates: start: 20240308, end: 20240504
  5. PREDNISONE ACETATE [Suspect]
     Active Substance: PREDNISONE ACETATE
     Indication: Chronic kidney disease
     Dosage: 15 MG, QD
     Route: 048
     Dates: start: 20240308, end: 20240504
  6. METHOTREXATE [Suspect]
     Active Substance: METHOTREXATE
     Indication: Anti-neutrophil cytoplasmic antibody positive vasculitis
     Dosage: 10 MG, QW
     Route: 048
     Dates: start: 20240308, end: 20240504

REACTIONS (5)
  - Myelosuppression [Recovered/Resolved]
  - Mouth ulceration [Recovered/Resolved]
  - Abdominal pain upper [Recovered/Resolved]
  - Abdominal discomfort [Recovered/Resolved]
  - Oral pain [Recovered/Resolved]

NARRATIVE: CASE EVENT DATE: 20240504
